FAERS Safety Report 9664271 (Version 1)
Quarter: 2013Q4

REPORT INFORMATION
  Report Type: Spontaneous
  Country: PH (occurrence: PH)
  Receive Date: 20131101
  Receipt Date: 20131101
  Transmission Date: 20140711
  Serious: Yes (Death, Other)
  Sender: FDA-Public Use
  Company Number: PH-009507513-1310PHL014005

PATIENT
  Sex: Female

DRUGS (1)
  1. JANUMET [Suspect]
     Dosage: 1 DF, QD
     Route: 048

REACTIONS (1)
  - Cardiac arrest [Fatal]
